FAERS Safety Report 6174528-0 (Version None)
Quarter: 2009Q2

REPORT INFORMATION
  Report Type: 
  Country: None (occurrence: None)
  Receive Date: 20090430
  Receipt Date: 20080714
  Transmission Date: 20091009
  Serious: No
  Sender: FDA-Public Use
  Company Number: US-ASTRAZENECA-2008UW14043

PATIENT
  Sex: Female

DRUGS (3)
  1. NEXIUM [Suspect]
     Route: 048
  2. COUMADIN [Concomitant]
  3. METOPROLOL TARTRATE [Concomitant]
     Route: 048

REACTIONS (3)
  - EYE PAIN [None]
  - HEADACHE [None]
  - NAUSEA [None]
